FAERS Safety Report 4885724-4 (Version None)
Quarter: 2006Q1

REPORT INFORMATION
  Report Type: 
  Country: None (occurrence: None)
  Receive Date: 20060117
  Receipt Date: 20060103
  Transmission Date: 20060701
  Serious: Yes (Death)
  Sender: FDA-Public Use
  Company Number: 2006-UK-00007UK

PATIENT
  Sex: 0

DRUGS (1)
  1. ORAMORPH UDV (0015/0157-0159) (MORPHINE SULFATE) [Suspect]
     Indication: PALLIATIVE CARE

REACTIONS (3)
  - CIRCUMSTANCE OR INFORMATION CAPABLE OF LEADING TO MEDICATION ERROR [None]
  - DRUG PRESCRIBING ERROR [None]
  - UNEVALUABLE EVENT [None]
